FAERS Safety Report 4865922-6 (Version None)
Quarter: 2005Q4

REPORT INFORMATION
  Report Type: 
  Country: None (occurrence: None)
  Receive Date: 20051226
  Receipt Date: 20051219
  Transmission Date: 20060501
  Serious: Yes (Hospitalization)
  Sender: FDA-Public Use
  Company Number: PHRM2005FR03342

PATIENT
  Age: 58 Year
  Sex: Male

DRUGS (3)
  1. LIORESAL [Suspect]
     Indication: MUSCLE SPASTICITY
     Dosage: 60 MG/DAY
     Route: 048
  2. LIORESAL [Suspect]
     Dosage: 80 MG/DAY
     Route: 048
  3. GARDENAL [Suspect]
     Indication: EPILEPSY
     Route: 048

REACTIONS (2)
  - DIPLOPIA [None]
  - DRUG INTERACTION [None]
